FAERS Safety Report 24142893 (Version 1)
Quarter: 2024Q3

REPORT INFORMATION
  Report Type: Spontaneous
  Country: FR (occurrence: FR)
  Receive Date: 20240726
  Receipt Date: 20240726
  Transmission Date: 20241017
  Serious: Yes (Hospitalization, Other)
  Sender: DR REDDYS
  Company Number: None

PATIENT
  Age: 73 Year
  Sex: Female
  Weight: 108.5 kg

DRUGS (13)
  1. CYCLOPHOSPHAMIDE [Suspect]
     Active Substance: CYCLOPHOSPHAMIDE
     Indication: Breast cancer
     Dosage: UNSPECIFIED
     Route: 042
     Dates: start: 20240704
  2. PANTOPRAZOLE [Suspect]
     Active Substance: PANTOPRAZOLE
     Indication: Gastrooesophageal reflux disease
     Dosage: SUN PHARMA 40 MG, POWDER FOR SOLUTION FOR INJECTION
     Route: 042
     Dates: start: 20240709, end: 20240712
  3. EPIRUBICIN [Suspect]
     Active Substance: EPIRUBICIN
     Indication: Breast cancer
     Dosage: UNSPECIFIED
     Route: 042
     Dates: start: 20240704
  4. CEFTRIAXONE [Concomitant]
     Active Substance: CEFTRIAXONE\CEFTRIAXONE SODIUM
     Indication: Product used for unknown indication
     Dosage: VIATRIS 1 G, POUDRE POUR SOLUTION INJECTABLE
  5. HYDROXYZINE [Concomitant]
     Active Substance: HYDROXYZINE HYDROCHLORIDE
     Indication: Product used for unknown indication
     Dosage: BLUEFISH 25 MG, COMPRIME PELLICULE
  6. VIALEBEX [Concomitant]
     Active Substance: ALBUMIN HUMAN
     Indication: Product used for unknown indication
  7. ERYTHROMYCIN [Concomitant]
     Active Substance: ERYTHROMYCIN
     Indication: Product used for unknown indication
     Dosage: PANPHARMA 1 G, POUDRE POUR SOLUTION A DILUER POUR PERFUSION
  8. VITAMIN K [Concomitant]
     Active Substance: PHYTONADIONE
     Indication: Product used for unknown indication
     Dosage: CHEPLAPHARM 10 MG/1 ML, SOLUTION BUVABLE ET INJECTABLE
  9. OCTREOTIDE [Concomitant]
     Active Substance: OCTREOTIDE\OCTREOTIDE ACETATE
     Indication: Product used for unknown indication
     Dosage: ARROW 500 MICROGRAMMES/1 ML, SOLUTION INJECTABLE
  10. HUMALOG [Concomitant]
     Active Substance: INSULIN LISPRO
     Indication: Product used for unknown indication
  11. PHLOROGLUCINOL [Concomitant]
     Active Substance: PHLOROGLUCINOL
     Indication: Product used for unknown indication
     Dosage: TRIMETHYLPHLOROGLUCINOL ARROW 40 MG/0,04 MG PAR 4 ML, SOLUTION INJECTABLE
  12. CHLORHYDRATE DE [Concomitant]
     Indication: Product used for unknown indication
     Dosage: METOCLOPRAMIDE RENAUDIN 10 MG/2 ML, SOLUTION INJECTABLE EN AMPOULE
  13. TRESIBA [Concomitant]
     Active Substance: INSULIN DEGLUDEC
     Indication: Product used for unknown indication

REACTIONS (1)
  - Pancytopenia [Not Recovered/Not Resolved]

NARRATIVE: CASE EVENT DATE: 20240711
